FAERS Safety Report 5738156-0 (Version None)
Quarter: 2008Q2

REPORT INFORMATION
  Report Type: 
  Country: None (occurrence: None)
  Receive Date: 20080514
  Receipt Date: 20080411
  Transmission Date: 20081010
  Serious: Yes (Life-Threatening, Other)
  Sender: FDA-Public Use
  Company Number: GB-PFIZER INC-2008032741

PATIENT
  Age: 63 Year
  Sex: Male

DRUGS (4)
  1. BENDROFLUMETHIAZIDE [Suspect]
     Indication: HYPERTENSION
  2. FLECAINIDE ACETATE [Suspect]
     Indication: TACHYCARDIA
     Route: 048
  3. FLECAINIDE ACETATE [Suspect]
     Indication: PROPHYLAXIS
  4. FELODIPINE [Concomitant]
     Indication: HYPERTENSION

REACTIONS (4)
  - ARRHYTHMIA [None]
  - ELECTROLYTE IMBALANCE [None]
  - FATIGUE [None]
  - MUSCULAR WEAKNESS [None]
